FAERS Safety Report 21196962 (Version 1)
Quarter: 2022Q3

REPORT INFORMATION
  Report Type: Report from Study
  Country: BR (occurrence: BR)
  Receive Date: 20220810
  Receipt Date: 20220810
  Transmission Date: 20221027
  Serious: Yes (Other)
  Sender: FDA-Public Use
  Company Number: BR-NOVARTISPH-NVSC2022BR178524

PATIENT
  Age: 59 Year
  Sex: Female

DRUGS (2)
  1. TASIGNA [Suspect]
     Active Substance: NILOTINIB
     Indication: Product used for unknown indication
     Dosage: 2 DOSAGE FORM, Q12H
     Route: 048
  2. IMATINIB [Suspect]
     Active Substance: IMATINIB
     Indication: Product used for unknown indication
     Dosage: UNK
     Route: 065

REACTIONS (14)
  - Lung disorder [Unknown]
  - Chronic myeloid leukaemia [Unknown]
  - Cytopenia [Unknown]
  - Pulmonary arterial hypertension [Unknown]
  - Electrocardiogram QT prolonged [Unknown]
  - Haemorrhage [Unknown]
  - Skin disorder [Unknown]
  - Overweight [Unknown]
  - Fluid retention [Unknown]
  - Hyperglycaemia [Unknown]
  - Leukocytosis [Unknown]
  - Anaemia [Unknown]
  - Peripheral arterial occlusive disease [Unknown]
  - Fatigue [Unknown]
